FAERS Safety Report 12855260 (Version 3)
Quarter: 2016Q4

REPORT INFORMATION
  Report Type: Report from Study
  Country: MY (occurrence: MY)
  Receive Date: 20161017
  Receipt Date: 20161128
  Transmission Date: 20170207
  Serious: Yes (Death, Hospitalization)
  Sender: FDA-Public Use
  Company Number: PHHY2016MY096706

PATIENT
  Age: 57 Year
  Sex: Female

DRUGS (2)
  1. MULTIVIT [Concomitant]
     Active Substance: VITAMINS
     Indication: PRODUCT USED FOR UNKNOWN INDICATION
     Route: 065
  2. AFINITOR [Suspect]
     Active Substance: EVEROLIMUS
     Indication: BREAST CANCER
     Dosage: 5 MG, UNK
     Route: 048
     Dates: start: 20160504, end: 20161006

REACTIONS (9)
  - Asthenia [Recovering/Resolving]
  - Pyrexia [Recovering/Resolving]
  - Fatigue [Recovering/Resolving]
  - Circulatory collapse [Unknown]
  - Death [Fatal]
  - Dyspnoea [Recovering/Resolving]
  - Wound [Recovering/Resolving]
  - Pulmonary oedema [Recovering/Resolving]
  - Chills [Unknown]

NARRATIVE: CASE EVENT DATE: 20161024
